FAERS Safety Report 8839816 (Version 1)
Quarter: 2012Q4

REPORT INFORMATION
  Report Type: 
  Country: US (occurrence: US)
  Receive Date: 20121015
  Receipt Date: 20121015
  Transmission Date: 20130627
  Serious: No
  Sender: FDA-Public Use
  Company Number: US-BRISTOL-MYERS SQUIBB COMPANY-16363541

PATIENT
  Sex: Female

DRUGS (1)
  1. KENALOG [Suspect]
     Indication: DERMATITIS CONTACT
     Dosage: shot
     Dates: start: 201107

REACTIONS (1)
  - Injection site necrosis [Unknown]
